FAERS Safety Report 7423328-X (Version None)
Quarter: 2011Q2

REPORT INFORMATION
  Report Type: 
  Country: None (occurrence: None)
  Receive Date: 20110419
  Receipt Date: 20110411
  Transmission Date: 20111010
  Serious: Yes (Other)
  Sender: FDA-Public Use
  Company Number: AU-ROCHE-770751

PATIENT
  Sex: Female

DRUGS (7)
  1. HERCEPTIN [Suspect]
     Dosage: COULD NOT COMPLETE MORE THAN TWO CYCLES
     Route: 065
  2. CYCLOPHOSPHAMIDE [Concomitant]
  3. ZOMETA [Concomitant]
  4. TAXOL [Concomitant]
     Dosage: COMPLETED 12 MONTHS THERAPY
  5. HERCEPTIN [Suspect]
     Indication: BREAST CANCER
     Dosage: COMPLETED 12 MONTHS OF THERAPY
     Route: 065
  6. ADRIAMYCIN PFS [Concomitant]
     Dosage: DRUG: ADRIAMICIN
  7. TAXOL [Concomitant]

REACTIONS (3)
  - PYREXIA [None]
  - METASTASIS [None]
  - CHILLS [None]
